FAERS Safety Report 11885841 (Version 2)
Quarter: 2016Q1

REPORT INFORMATION
  Report Type: Spontaneous
  Country: US (occurrence: US)
  Receive Date: 20160104
  Receipt Date: 20160106
  Transmission Date: 20160526
  Serious: Yes (Other)
  Sender: FDA-Public Use
  Company Number: US-PFIZER INC-2016000607

PATIENT
  Age: 53 Year
  Sex: Male
  Weight: 59 kg

DRUGS (1)
  1. CHANTIX [Suspect]
     Active Substance: VARENICLINE TARTRATE
     Indication: SMOKING CESSATION THERAPY
     Dosage: ^20 MG^, 3X/DAY
     Dates: start: 2015

REACTIONS (3)
  - Testicular swelling [Unknown]
  - Penile haemorrhage [Unknown]
  - Erection increased [Unknown]

NARRATIVE: CASE EVENT DATE: 2015
